FAERS Safety Report 9258267 (Version 1)
Quarter: 2013Q2

REPORT INFORMATION
  Report Type: Spontaneous
  Country: US (occurrence: US)
  Receive Date: 20130426
  Receipt Date: 20130426
  Transmission Date: 20140414
  Serious: No
  Sender: FDA-Public Use
  Company Number: US-AMGEN-USASP2013029215

PATIENT
  Age: 59 Year
  Sex: Female
  Weight: 104.7 kg

DRUGS (4)
  1. PROCRIT [Suspect]
     Indication: BLOOD IRON ABNORMAL
     Dosage: 10000 UNIT, Q2WK
     Route: 058
  2. INSULIN [Concomitant]
     Indication: DIABETES MELLITUS
     Dosage: UNK
  3. LISINOPRIL [Concomitant]
     Indication: HYPERTENSION
     Dosage: UNK
  4. CLARITIN                           /00917501/ [Concomitant]
     Indication: HYPERSENSITIVITY
     Dosage: UNK

REACTIONS (1)
  - Blood iron decreased [Recovered/Resolved]
